FAERS Safety Report 9121033 (Version 1)
Quarter: 2013Q1

REPORT INFORMATION
  Report Type: Spontaneous
  Country: US (occurrence: US)
  Receive Date: 20130226
  Receipt Date: 20130226
  Transmission Date: 20140127
  Serious: No
  Sender: FDA-Public Use
  Company Number: US-ASTRAZENECA-2011SE46700

PATIENT
  Age: 75 Year
  Sex: Female
  Weight: 78.9 kg

DRUGS (4)
  1. NEXIUM [Suspect]
     Indication: GASTROOESOPHAGEAL REFLUX DISEASE
     Route: 048
     Dates: start: 2008
  2. OMEPRAZOLE [Suspect]
     Indication: GASTROOESOPHAGEAL REFLUX DISEASE
     Route: 048
  3. ROLAIDS [Concomitant]
  4. LEVOTHYROXINE [Concomitant]

REACTIONS (5)
  - Body height decreased [Not Recovered/Not Resolved]
  - Alcoholic liver disease [Unknown]
  - Intentional drug misuse [Not Recovered/Not Resolved]
  - Liver disorder [Not Recovered/Not Resolved]
  - Drug ineffective [Not Recovered/Not Resolved]
